FAERS Safety Report 11841294 (Version 3)
Quarter: 2016Q2

REPORT INFORMATION
  Report Type: Spontaneous
  Country: US (occurrence: US)
  Receive Date: 20151216
  Receipt Date: 20160413
  Transmission Date: 20160815
  Serious: Yes (Hospitalization, Other)
  Sender: FDA-Public Use
  Company Number: US-PFIZER INC-2015440815

PATIENT
  Age: 64 Year
  Sex: Female
  Weight: 50 kg

DRUGS (17)
  1. BABY ASPIRIN [Concomitant]
     Active Substance: ASPIRIN
     Indication: THROMBOSIS PROPHYLAXIS
     Dosage: 81 MG, 1X/DAY
     Dates: start: 199801
  2. FUROSEMIDE. [Concomitant]
     Active Substance: FUROSEMIDE
     Indication: DIURETIC THERAPY
     Dosage: 20 MG, AS NEEDED
     Dates: start: 199801
  3. RAPAMUNE [Suspect]
     Active Substance: SIROLIMUS
     Indication: PROPHYLAXIS AGAINST TRANSPLANT REJECTION
     Dosage: 2 MG, 1X/DAY
     Route: 048
     Dates: start: 200510
  4. OMEPRAZOLE. [Concomitant]
     Active Substance: OMEPRAZOLE
     Indication: ANTACID THERAPY
     Dosage: 20 MG, 1X/DAY
     Dates: start: 200510
  5. CEPHALEXIN. [Concomitant]
     Active Substance: CEPHALEXIN
     Indication: ANTIBIOTIC PROPHYLAXIS
     Dosage: 500 MG, 1X/DAY
     Dates: start: 201509
  6. LANTUS [Concomitant]
     Active Substance: INSULIN GLARGINE
     Indication: BLOOD GLUCOSE ABNORMAL
     Dosage: 4-8 UNITS, 1X/DAY AT BEDTIME
     Dates: start: 200510
  7. BUPROPION. [Concomitant]
     Active Substance: BUPROPION
     Dosage: UNK
     Dates: start: 200906, end: 201511
  8. BUPROPION. [Concomitant]
     Active Substance: BUPROPION
     Indication: SUPPLEMENTATION THERAPY
     Dosage: 300 MG, 1X/DAY
     Dates: start: 200906
  9. IRBESARTAN. [Concomitant]
     Active Substance: IRBESARTAN
     Indication: BLOOD PRESSURE ABNORMAL
     Dosage: 75 MG, 1X/DAY
     Dates: start: 200510
  10. SIMVASTATIN. [Concomitant]
     Active Substance: SIMVASTATIN
     Indication: BLOOD CHOLESTEROL INCREASED
     Dosage: 80 MG, 1X/DAY
     Dates: start: 199801
  11. FENOFIBRATE. [Concomitant]
     Active Substance: FENOFIBRATE
     Indication: BLOOD TRIGLYCERIDES ABNORMAL
     Dosage: 54 MG, 1X/DAY
     Dates: start: 200511
  12. PREDNISONE. [Concomitant]
     Active Substance: PREDNISONE
     Indication: SUPPLEMENTATION THERAPY
     Dosage: 4 MG, 1X/DAY
     Dates: start: 200510
  13. PROCRIT [Concomitant]
     Active Substance: ERYTHROPOIETIN
     Indication: HAEMOGLOBIN ABNORMAL
     Dosage: 60000 IU, CYCLIC EVERY 2 WEEKS
     Dates: start: 200305
  14. LAMOTRIGINE. [Concomitant]
     Active Substance: LAMOTRIGINE
     Indication: DEPRESSION
     Dosage: 50 MG, 2X/DAY
     Dates: start: 201405
  15. FOLIC ACID. [Concomitant]
     Active Substance: FOLIC ACID
     Indication: PROPHYLAXIS
     Dosage: 1000 MG, 1X/DAY
     Dates: start: 200510
  16. RAPAMUNE [Suspect]
     Active Substance: SIROLIMUS
     Dosage: 2 MG, 1X/DAY
  17. MYCOPHENOLATE [Concomitant]
     Active Substance: MYCOPHENOLIC ACID
     Dosage: 1000 MG, 2X/DAY
     Dates: start: 200510

REACTIONS (3)
  - Cerebrovascular accident [Recovered/Resolved]
  - Herpes zoster [Not Recovered/Not Resolved]
  - Product use issue [Unknown]

NARRATIVE: CASE EVENT DATE: 20151001
